FAERS Safety Report 23094003 (Version 3)
Quarter: 2023Q4

REPORT INFORMATION
  Report Type: Spontaneous
  Country: ES (occurrence: ES)
  Receive Date: 20231023
  Receipt Date: 20231201
  Transmission Date: 20240110
  Serious: Yes (Death, Other)
  Sender: FDA-Public Use
  Company Number: ES-002147023-NVSC2021ES040761

PATIENT
  Age: 25 Year
  Sex: Male

DRUGS (29)
  1. AMIKACIN SULFATE [Suspect]
     Active Substance: AMIKACIN SULFATE
     Indication: Pseudomonas aeruginosa meningitis
     Dosage: UNK
     Route: 065
  2. AMIKACIN SULFATE [Suspect]
     Active Substance: AMIKACIN SULFATE
     Indication: Pneumonia
  3. AMPHOTERICIN B [Suspect]
     Active Substance: AMPHOTERICIN B
     Indication: Fungaemia
     Dosage: LIPOSOMAL AMPHOTERICIN B WAS STARTED (270 MG EVERY 24 HOURS)
     Route: 065
  4. AMPHOTERICIN B [Suspect]
     Active Substance: AMPHOTERICIN B
     Indication: Fungal infection
  5. BASILIXIMAB [Suspect]
     Active Substance: BASILIXIMAB
     Indication: Immunosuppressant drug therapy
     Dosage: 20 MG (BEFORE THE SURGERY AND AT DAY +4)
     Route: 065
  6. BASILIXIMAB [Suspect]
     Active Substance: BASILIXIMAB
     Indication: Heart transplant
  7. BASILIXIMAB [Suspect]
     Active Substance: BASILIXIMAB
     Indication: Prophylaxis against transplant rejection
  8. CEFTAZIDIME [Suspect]
     Active Substance: CEFTAZIDIME
     Indication: Pseudomonas infection
     Dosage: 1 G, Q8H
     Route: 065
  9. CEFTAZIDIME [Suspect]
     Active Substance: CEFTAZIDIME
     Indication: Pneumonia
  10. GANCICLOVIR [Suspect]
     Active Substance: GANCICLOVIR
     Indication: Antibiotic prophylaxis
     Dosage: UNK
     Route: 065
  11. GANCICLOVIR [Suspect]
     Active Substance: GANCICLOVIR
     Indication: Antiviral prophylaxis
  12. MEROPENEM [Suspect]
     Active Substance: MEROPENEM
     Indication: Pneumonia
     Dosage: 500MG/24 HOURS
     Route: 065
  13. METHYLPREDNISOLONE [Suspect]
     Active Substance: METHYLPREDNISOLONE
     Indication: Product used for unknown indication
     Dosage: 125 MG, Q8H (WITH TAPERING FROM 60 MG/DAY TO 10 MG/DAY)
     Route: 065
  14. MYCOPHENOLATE MOFETIL [Suspect]
     Active Substance: MYCOPHENOLATE MOFETIL
     Indication: Immunosuppressant drug therapy
     Dosage: 1000 MG, Q12H
     Route: 065
  15. MYCOPHENOLATE MOFETIL [Suspect]
     Active Substance: MYCOPHENOLATE MOFETIL
     Indication: Heart transplant
  16. MYCOPHENOLATE MOFETIL [Suspect]
     Active Substance: MYCOPHENOLATE MOFETIL
     Indication: Prophylaxis against transplant rejection
  17. PREDNISONE [Suspect]
     Active Substance: PREDNISONE
     Indication: Prophylaxis against transplant rejection
     Dosage: 15 MG, Q12H
     Route: 065
  18. TERBINAFINE [Suspect]
     Active Substance: TERBINAFINE
     Indication: Scedosporium infection
     Dosage: UNK
     Route: 065
  19. VANCOMYCIN [Suspect]
     Active Substance: VANCOMYCIN
     Indication: Pneumonia
     Dosage: 1G/24 HOURS
     Route: 065
  20. VORICONAZOLE [Suspect]
     Active Substance: VORICONAZOLE
     Dosage: 300 MG, Q12H
     Route: 065
  21. VORICONAZOLE [Suspect]
     Active Substance: VORICONAZOLE
     Indication: Product used for unknown indication
     Dosage: 400 MG, Q12H (FIRST DAY)
     Route: 065
  22. ACENOCOUMAROL [Concomitant]
     Active Substance: ACENOCOUMAROL
     Indication: Syncope
     Dosage: UNK
     Route: 005
  23. AMIODARONE [Concomitant]
     Active Substance: AMIODARONE
     Indication: Syncope
     Dosage: UNK
     Route: 065
  24. ANIDULAFUNGIN [Concomitant]
     Active Substance: ANIDULAFUNGIN
     Dosage: 100 MG, QD (DAILY)
     Route: 065
  25. ANIDULAFUNGIN [Concomitant]
     Active Substance: ANIDULAFUNGIN
     Indication: Antifungal prophylaxis
     Dosage: 200 MG ON THE FIRST DAY
     Route: 065
  26. CEFAZOLIN [Concomitant]
     Active Substance: CEFAZOLIN
     Indication: Antibiotic prophylaxis
     Dosage: 2 G, Q8H
     Route: 065
  27. CEFAZOLIN [Concomitant]
     Active Substance: CEFAZOLIN
     Dosage: 2 MG, Q8H
     Route: 065
  28. COTRIMOXAZOLE [Concomitant]
     Active Substance: SULFAMETHOXAZOLE\TRIMETHOPRIM
     Indication: Antibiotic prophylaxis
     Dosage: UNK
     Route: 065
  29. TACROLIMUS [Concomitant]
     Active Substance: TACROLIMUS
     Indication: Product used for unknown indication
     Route: 065

REACTIONS (13)
  - Fungaemia [Fatal]
  - Scedosporium infection [Fatal]
  - Drug ineffective [Fatal]
  - Pancytopenia [Unknown]
  - Altered state of consciousness [Unknown]
  - Hemiparesis [Unknown]
  - Epilepsy [Unknown]
  - Septic shock [Unknown]
  - Pneumonia bacterial [Unknown]
  - Pseudomonal bacteraemia [Unknown]
  - Influenza [Unknown]
  - Candida infection [Unknown]
  - Product use in unapproved indication [Unknown]
